FAERS Safety Report 4431584-5 (Version None)
Quarter: 2004Q3

REPORT INFORMATION
  Report Type: 
  Country: None (occurrence: None)
  Receive Date: 20040726
  Receipt Date: 20040514
  Transmission Date: 20050211
  Serious: No
  Sender: FDA-Public Use
  Company Number: US_0403101172

PATIENT
  Age: 84 Year
  Sex: Female

DRUGS (12)
  1. FORTEO [Suspect]
     Indication: OSTEOPOROSIS
     Dosage: 20 UG/1 DAY
     Dates: start: 20040206, end: 20040509
  2. VITAMIN D [Concomitant]
  3. ASPIRIN [Concomitant]
  4. LOPRESSOR [Concomitant]
  5. PREDNISONE [Concomitant]
  6. LASIX [Concomitant]
  7. SYNTHROID [Concomitant]
  8. POTASSIUM [Concomitant]
  9. ZOLOFT [Concomitant]
  10. SEROQUEL [Concomitant]
  11. ARICEPT [Concomitant]
  12. CALCIUM [Concomitant]

REACTIONS (4)
  - ASTHENIA [None]
  - DIZZINESS [None]
  - LETHARGY [None]
  - SOMNOLENCE [None]
